FAERS Safety Report 9872818 (Version 2)
Quarter: 2014Q1

REPORT INFORMATION
  Report Type: Report from Study
  Country: CA (occurrence: CA)
  Receive Date: 20140206
  Receipt Date: 20140206
  Transmission Date: 20141002
  Serious: Yes (Death, Hospitalization, Other)
  Sender: FDA-Public Use
  Company Number: CA-ROCHE-1318636

PATIENT
  Age: 63 Year
  Sex: Male

DRUGS (3)
  1. PEGASYS [Suspect]
     Indication: CHRONIC HEPATITIS C
     Dosage: 180 MCG/0.5 ML PRE-FILLED SYRINGE
     Route: 058
     Dates: start: 20131021, end: 20131202
  2. COPEGUS [Suspect]
     Indication: CHRONIC HEPATITIS C
     Dosage: 49 TABLETS/WEEK
     Route: 065
     Dates: start: 20131021, end: 20131202
  3. VICTRELIS [Suspect]
     Indication: CHRONIC HEPATITIS C
     Route: 048
     Dates: start: 20131118, end: 20131202

REACTIONS (4)
  - Septic shock [Fatal]
  - Malaise [Not Recovered/Not Resolved]
  - Localised infection [Unknown]
  - Jaundice [Unknown]
